FAERS Safety Report 26055371 (Version 1)
Quarter: 2025Q4

REPORT INFORMATION
  Report Type: Spontaneous
  Country: US (occurrence: None)
  Receive Date: 20251117
  Receipt Date: 20251117
  Transmission Date: 20260117
  Serious: Yes (Hospitalization, Other)
  Sender: AMERICAN REGENT
  Company Number: US-AMERICAN REGENT INC-2025004081

PATIENT
  Sex: Female

DRUGS (1)
  1. VENOFER [Suspect]
     Active Substance: IRON SUCROSE
     Indication: Iron deficiency anaemia
     Dosage: UNK

REACTIONS (7)
  - Surgery [Unknown]
  - Leg amputation [Unknown]
  - Spinal operation [Unknown]
  - Spinal operation [Unknown]
  - Hospitalisation [Unknown]
  - Haemoglobin decreased [Not Recovered/Not Resolved]
  - Off label use [Unknown]

NARRATIVE: CASE EVENT DATE: 20250101
